FAERS Safety Report 10262034 (Version 1)
Quarter: 2014Q2

REPORT INFORMATION
  Report Type: Spontaneous
  Country: US (occurrence: US)
  Receive Date: 20140626
  Receipt Date: 20140626
  Transmission Date: 20141212
  Serious: No
  Sender: FDA-Public Use
  Company Number: US-009507513-1406USA011529

PATIENT
  Sex: Female

DRUGS (1)
  1. NEXPLANON [Suspect]
     Route: 059

REACTIONS (5)
  - Muscle spasms [Unknown]
  - Implant site reaction [Unknown]
  - Device breakage [Unknown]
  - Medical device complication [Unknown]
  - Headache [Unknown]
